FAERS Safety Report 12360766 (Version 1)
Quarter: 2016Q2

REPORT INFORMATION
  Report Type: Spontaneous
  Country: US (occurrence: US)
  Receive Date: 20160512
  Receipt Date: 20160512
  Transmission Date: 20160815
  Serious: Yes (Other)
  Sender: FDA-Public Use
  Company Number: US-SAGENTPRD-2016-US-000010

PATIENT
  Age: 67 Year
  Sex: Male
  Weight: 64 kg

DRUGS (9)
  1. AMINOCAPROIC ACID. [Concomitant]
     Active Substance: AMINOCAPROIC ACID
     Dates: start: 20160429, end: 20160429
  2. PROPOFOL. [Concomitant]
     Active Substance: PROPOFOL
     Dates: start: 20160429, end: 20160429
  3. DEXMEDETOMIDINE. [Concomitant]
     Active Substance: DEXMEDETOMIDINE
     Dates: start: 20160429, end: 20160429
  4. NITROGLYCERIN. [Concomitant]
     Active Substance: NITROGLYCERIN
     Dates: start: 20160429, end: 20160429
  5. ROCURONIUM [Concomitant]
     Active Substance: ROCURONIUM BROMIDE
     Dates: start: 20160429, end: 20160429
  6. FENTANYL. [Concomitant]
     Active Substance: FENTANYL
     Dates: start: 20160429, end: 20160429
  7. VECURONIUM [Concomitant]
     Active Substance: VECURONIUM BROMIDE
     Dates: start: 20160429, end: 20160429
  8. CEFAZOLIN [Concomitant]
     Active Substance: CEFAZOLIN
     Dates: start: 20160429, end: 20160429
  9. HEPARIN SODIUM INJECTION, MDV, 30 ML, 1000 U/ML [Suspect]
     Active Substance: HEPARIN SODIUM
     Dosage: 42,000 U TOTAL DOSE
     Route: 042
     Dates: start: 20160429, end: 20160429

REACTIONS (1)
  - Drug ineffective [Unknown]

NARRATIVE: CASE EVENT DATE: 20160429
